FAERS Safety Report 15665580 (Version 5)
Quarter: 2019Q3

REPORT INFORMATION
  Report Type: Spontaneous
  Country: US (occurrence: US)
  Receive Date: 20181128
  Receipt Date: 20190819
  Transmission Date: 20191004
  Serious: Yes (Other)
  Sender: FDA-Public Use
  Company Number: US-PFIZER INC-2018478189

PATIENT
  Age: 76 Year
  Sex: Female

DRUGS (5)
  1. ARMOUR THYROID [Concomitant]
     Active Substance: THYROID, PORCINE
     Dosage: 120 MG, DAILY
  2. IBRANCE [Suspect]
     Active Substance: PALBOCICLIB
     Indication: BREAST CANCER METASTATIC
     Dosage: 75 MG, 1X/DAY (15 DAYS PER MO)
     Dates: start: 201712
  3. LETROZOLE. [Concomitant]
     Active Substance: LETROZOLE
     Dosage: 1.25 MG, 2X/WEEK
  4. MORPHINE SULFATE. [Concomitant]
     Active Substance: MORPHINE SULFATE
     Indication: PAIN
     Dosage: UNK (7- 30 MG)
  5. LETROZOLE. [Concomitant]
     Active Substance: LETROZOLE
     Indication: BREAST CANCER FEMALE
     Dosage: UNK (2.5 TAKE 1/2 TAB AT LEAST 2X PER WEEK)
     Dates: start: 201712

REACTIONS (10)
  - Stomatitis [Not Recovered/Not Resolved]
  - White blood cell count decreased [Unknown]
  - Haemorrhage [Not Recovered/Not Resolved]
  - Arthritis [Not Recovered/Not Resolved]
  - Energy increased [Unknown]
  - Oral pain [Not Recovered/Not Resolved]
  - Fatigue [Recovering/Resolving]
  - Anaemia [Unknown]
  - Hot flush [Not Recovered/Not Resolved]
  - Neuropathy peripheral [Unknown]
